FAERS Safety Report 9474198 (Version 4)
Quarter: 2013Q4

REPORT INFORMATION
  Report Type: Report from Study
  Country: DE (occurrence: DE)
  Receive Date: 20130823
  Receipt Date: 20131125
  Transmission Date: 20140711
  Serious: Yes (Hospitalization)
  Sender: FDA-Public Use
  Company Number: DE-AMGEN-DEUCT2013059412

PATIENT
  Age: 56 Year
  Sex: Female
  Weight: 95 kg

DRUGS (10)
  1. ETANERCEPT [Suspect]
     Indication: PRODUCT USED FOR UNKNOWN INDICATION
     Dosage: 50 MG, WEEKLY
     Route: 065
     Dates: start: 20130218
  2. IBUFLAM                            /00109201/ [Concomitant]
     Indication: RHEUMATOID ARTHRITIS
     Dosage: 600 MG, 1X/DAY
     Route: 048
     Dates: start: 201211
  3. FOLIC ACID [Concomitant]
     Indication: PROPHYLAXIS
     Dosage: 5 MG, WEEKLY
     Route: 048
     Dates: start: 201208
  4. BERLINSULIN H BASAL [Concomitant]
     Indication: TYPE 2 DIABETES MELLITUS
     Dosage: 12 IU, 1X/DAY
     Route: 058
     Dates: start: 200902
  5. BISOPROLOL [Concomitant]
     Indication: ESSENTIAL HYPERTENSION
     Dosage: 5 MG, 1X/DAY
     Route: 048
     Dates: start: 1997
  6. METFOGAMMA [Concomitant]
     Indication: TYPE 2 DIABETES MELLITUS
     Dosage: 1000 MG, 2X/DAY
     Route: 048
     Dates: start: 2006
  7. SIMVASTATIN [Concomitant]
     Indication: ESSENTIAL HYPERTENSION
     Dosage: 20 MG, 1X/DAY
     Route: 048
     Dates: start: 2006
  8. ALLOPURINOL [Concomitant]
     Indication: NEPHROPATHY
     Dosage: 100 MG, 1X/DAY
     Route: 048
  9. BERLINSULIN H NORMAL [Concomitant]
     Indication: TYPE 2 DIABETES MELLITUS
     Dosage: 42 IU A 3 ML, 1X/DAY
     Route: 058
     Dates: start: 200902
  10. EXFORGE [Concomitant]
     Indication: HYPERTENSION
     Dosage: 10/320/25 MG ONCE DAILY
     Dates: start: 200902

REACTIONS (1)
  - Urinary tract infection [Recovered/Resolved]
